FAERS Safety Report 7749194-0 (Version None)
Quarter: 2011Q3

REPORT INFORMATION
  Report Type: 
  Country: None (occurrence: None)
  Receive Date: 20110914
  Receipt Date: 20110901
  Transmission Date: 20111222
  Serious: Yes (Hospitalization)
  Sender: FDA-Public Use
  Company Number: US-BAYER-2011-003487

PATIENT
  Age: 47 Year
  Sex: Female
  Weight: 68 kg

DRUGS (3)
  1. DROSPIRENONE AND ETHINYL ESTRADIOL [Suspect]
     Route: 048
  2. DROSPIRENONE AND ETHINYL ESTRADIOL [Suspect]
     Indication: CONTRACEPTION
     Dosage: UNK
     Route: 048
     Dates: start: 20090101, end: 20090322
  3. DROSPIRENONE AND ETHINYL ESTRADIOL [Suspect]
     Route: 048

REACTIONS (12)
  - GAIT DISTURBANCE [None]
  - VIITH NERVE PARALYSIS [None]
  - PAIN [None]
  - HEARING IMPAIRED [None]
  - INJURY [None]
  - HEADACHE [None]
  - FATIGUE [None]
  - ASTHENIA [None]
  - CEREBROVASCULAR ACCIDENT [None]
  - MENTAL IMPAIRMENT [None]
  - EMOTIONAL DISTRESS [None]
  - AMNESIA [None]
